FAERS Safety Report 24619462 (Version 1)
Quarter: 2024Q4

REPORT INFORMATION
  Report Type: Spontaneous
  Country: US (occurrence: US)
  Receive Date: 20241114
  Receipt Date: 20241114
  Transmission Date: 20250114
  Serious: Yes (Hospitalization)
  Sender: AUROBINDO
  Company Number: US-AUROBINDO-AUR-APL-2024-003611

PATIENT
  Sex: Male

DRUGS (5)
  1. AZITHROMYCIN [Suspect]
     Active Substance: AZITHROMYCIN
     Indication: Achromobacter infection
     Dosage: UNK
     Route: 042
  2. AZITHROMYCIN [Suspect]
     Active Substance: AZITHROMYCIN
     Dosage: UNK,500 MG ONE TIME,250 MG ONE TIME PER DAY
     Route: 048
  3. AMOXICILLIN\CLAVULANIC ACID [Suspect]
     Active Substance: AMOXICILLIN\CLAVULANIC ACID
     Indication: Achromobacter infection
     Dosage: 1 DOSAGE FORM, TWO TIMES A DAY
     Route: 048
  4. CEFTRIAXONE [Suspect]
     Active Substance: CEFTRIAXONE
     Indication: Achromobacter infection
     Dosage: 1 GRAM, ONCE A DAY
     Route: 042
  5. LEVOFLOXACIN [Concomitant]
     Active Substance: LEVOFLOXACIN
     Indication: Achromobacter infection
     Dosage: 750 MILLIGRAM, ONCE A DAY, FOR 2 WEEKS
     Route: 048

REACTIONS (1)
  - Drug ineffective [Unknown]
